FAERS Safety Report 24004137 (Version 1)
Quarter: 2024Q2

REPORT INFORMATION
  Report Type: Spontaneous
  Country: US (occurrence: US)
  Receive Date: 20240624
  Receipt Date: 20240624
  Transmission Date: 20240715
  Serious: No
  Sender: FDA-Public Use
  Company Number: US-BRISTOL-MYERS SQUIBB COMPANY-2024-099948

PATIENT
  Age: 57 Year
  Sex: Male

DRUGS (2)
  1. REVLIMID [Suspect]
     Active Substance: LENALIDOMIDE
     Indication: Plasma cell myeloma
     Route: 048
     Dates: start: 20240606
  2. REVLIMID [Suspect]
     Active Substance: LENALIDOMIDE

REACTIONS (4)
  - Vision blurred [Not Recovered/Not Resolved]
  - Constipation [Unknown]
  - Paraesthesia [Not Recovered/Not Resolved]
  - Off label use [Unknown]
